FAERS Safety Report 6339293-2 (Version None)
Quarter: 2009Q3

REPORT INFORMATION
  Report Type: 
  Country: None (occurrence: None)
  Receive Date: 20090903
  Receipt Date: 20090826
  Transmission Date: 20100115
  Serious: Yes (Other)
  Sender: FDA-Public Use
  Company Number: A0805462A

PATIENT
  Sex: Female

DRUGS (5)
  1. LAMICTAL [Suspect]
     Indication: BIPOLAR DISORDER
     Dosage: 200MG PER DAY
     Route: 048
     Dates: start: 20070101, end: 20090825
  2. LEXAPRO [Concomitant]
  3. BUPROPION HCL [Concomitant]
     Dates: end: 20090101
  4. RANITIDINE [Concomitant]
  5. BIRTH CONTROL PILL [Concomitant]

REACTIONS (5)
  - CHROMATOPSIA [None]
  - COLOUR BLINDNESS [None]
  - EYE PAIN [None]
  - VISION BLURRED [None]
  - VISUAL IMPAIRMENT [None]
